FAERS Safety Report 24605579 (Version 3)
Quarter: 2025Q3

REPORT INFORMATION
  Report Type: Spontaneous
  Country: US (occurrence: US)
  Receive Date: 20241111
  Receipt Date: 20250708
  Transmission Date: 20251021
  Serious: No
  Sender: SANOFI AVENTIS
  Company Number: US-SA-2024SA320688

PATIENT
  Age: 3 Year
  Sex: Male

DRUGS (1)
  1. DUPIXENT [Suspect]
     Active Substance: DUPILUMAB
     Indication: Eczema
     Dosage: 200 MG, Q4W
     Route: 058
     Dates: start: 20240702

REACTIONS (9)
  - Dry skin [Unknown]
  - Rash erythematous [Unknown]
  - Skin ulcer [Recovering/Resolving]
  - Rebound eczema [Unknown]
  - Rash [Unknown]
  - Product dose omission in error [Unknown]
  - Skin exfoliation [Unknown]
  - Therapeutic response decreased [Unknown]
  - Eczema [Unknown]

NARRATIVE: CASE EVENT DATE: 20241001
